FAERS Safety Report 7648526-1 (Version None)
Quarter: 2011Q3

REPORT INFORMATION
  Report Type: 
  Country: None (occurrence: None)
  Receive Date: 20110801
  Receipt Date: 20110726
  Transmission Date: 20111222
  Serious: Yes (Life-Threatening, Hospitalization, Other)
  Sender: FDA-Public Use
  Company Number: JP-PFIZER INC-2011170456

PATIENT
  Age: 70 Year
  Sex: Female

DRUGS (6)
  1. MOBIC [Concomitant]
     Indication: BACK PAIN
     Route: 048
  2. AMOBAN [Concomitant]
     Route: 048
  3. PARULEON [Concomitant]
     Route: 048
  4. LYRICA [Suspect]
     Indication: BACK PAIN
     Dosage: 75 MG PER DAY
     Route: 048
     Dates: start: 20110707, end: 20110712
  5. PREDNISOLONE [Concomitant]
     Route: 048
  6. LEPETAN [Concomitant]
     Indication: BACK PAIN
     Route: 054

REACTIONS (3)
  - LOSS OF CONSCIOUSNESS [None]
  - DRUG INTERACTION [None]
  - RESPIRATORY FAILURE [None]
